FAERS Safety Report 22108969 (Version 1)
Quarter: 2023Q1

REPORT INFORMATION
  Report Type: Spontaneous
  Country: US (occurrence: None)
  Receive Date: 20230316
  Receipt Date: 20230316
  Transmission Date: 20230418
  Serious: Yes (Other)
  Sender: FDA-Public Use
  Company Number: None

PATIENT
  Age: 39 Year
  Sex: Female
  Weight: 72 kg

DRUGS (1)
  1. MELOXICAM [Suspect]
     Active Substance: MELOXICAM
     Indication: Temporomandibular joint syndrome
     Dosage: OTHER QUANTITY : 1 TABLET(S);?FREQUENCY : DAILY;?
     Route: 048
     Dates: start: 20230308, end: 20230314

REACTIONS (8)
  - Headache [None]
  - Dyspepsia [None]
  - Decreased appetite [None]
  - Dizziness [None]
  - Night sweats [None]
  - Influenza like illness [None]
  - Non-24-hour sleep-wake disorder [None]
  - Fatigue [None]

NARRATIVE: CASE EVENT DATE: 20230314
